FAERS Safety Report 16548526 (Version 1)
Quarter: 2019Q3

REPORT INFORMATION
  Report Type: Spontaneous
  Country: US (occurrence: US)
  Receive Date: 20190709
  Receipt Date: 20190709
  Transmission Date: 20191004
  Serious: No
  Sender: FDA-Public Use
  Company Number: US-TEVA-2019-US-1069137

PATIENT

DRUGS (1)
  1. MUPIROCIN. [Suspect]
     Active Substance: MUPIROCIN
     Indication: IMPETIGO

REACTIONS (3)
  - Drug hypersensitivity [Unknown]
  - Drug ineffective [Unknown]
  - Rash pruritic [Unknown]
